FAERS Safety Report 11006131 (Version 2)
Quarter: 2015Q2

REPORT INFORMATION
  Report Type: Spontaneous
  Country: CH (occurrence: CH)
  Receive Date: 20150409
  Receipt Date: 20150410
  Transmission Date: 20150821
  Serious: Yes (Death)
  Sender: FDA-Public Use
  Company Number: CH-BAYER-2015-093910

PATIENT
  Age: 68 Year
  Sex: Female
  Weight: 61 kg

DRUGS (21)
  1. VI-DE 3 [Concomitant]
     Dosage: 40 GTT, QD
  2. ASPIRIN CARDIO [Suspect]
     Active Substance: ASPIRIN
     Dosage: 100 MG, QD
     Route: 048
  3. NOVALGIN [Suspect]
     Active Substance: METAMIZOLE SODIUM
     Dosage: 0.5 G, Q3HR
  4. LYRICA [Suspect]
     Active Substance: PREGABALIN
     Dosage: 100 MG, QD
  5. SEROQUEL [Suspect]
     Active Substance: QUETIAPINE FUMARATE
     Dosage: 25 MG, QD
  6. AURORIX [Suspect]
     Active Substance: MOCLOBEMIDE
     Dosage: 300 MG, QD
  7. EUTHYROX [Concomitant]
     Active Substance: LEVOTHYROXINE SODIUM
     Dosage: 75 ?G, QD
  8. METOJECT [Suspect]
     Active Substance: METHOTREXATE SODIUM
     Indication: RHEUMATOID ARTHRITIS
     Dosage: 10 MG, OW
     Route: 030
  9. SELIPRAN [Suspect]
     Active Substance: PRAVASTATIN SODIUM
     Dosage: 40 MG, QD
  10. DAFALGAN [Suspect]
     Active Substance: ACETAMINOPHEN
     Dosage: 500 MG, Q3HR
  11. PANTOZOL [Suspect]
     Active Substance: PANTOPRAZOLE SODIUM
     Dosage: 40 MG, BID
  12. BRUFEN [Suspect]
     Active Substance: IBUPROFEN
     Dosage: 400 MG, PRN
  13. IMOVANE [Concomitant]
     Active Substance: ZOPICLONE
     Dosage: 7.5 MG, BID
  14. DUROGESIC [Concomitant]
     Active Substance: FENTANYL
     Dosage: 1 DF, Q72HR
  15. ACIDUM FOLICUM [Concomitant]
     Active Substance: FOLIC ACID
     Dosage: 5 MG, QD
  16. B12 ANKERMANN [Concomitant]
  17. LYRICA [Suspect]
     Active Substance: PREGABALIN
     Dosage: 25 MG, QD
  18. MOVICOL [Concomitant]
     Active Substance: POLYETHYLENE GLYCOL 3350\POTASSIUM CHLORIDE\SODIUM BICARBONATE\SODIUM CHLORIDE
     Dosage: 1 DF, PRN
  19. MOTILIUM [Concomitant]
     Active Substance: DOMPERIDONE
     Dosage: 10 MG, PRN
  20. SERESTA [Concomitant]
     Active Substance: OXAZEPAM
     Dosage: 15 MG, PRN
  21. ALUCOL [Concomitant]
     Active Substance: ALUMINUM HYDROXIDE\MAGNESIUM HYDROXIDE
     Dosage: UNK

REACTIONS (2)
  - Sepsis [Fatal]
  - Pancytopenia [Fatal]

NARRATIVE: CASE EVENT DATE: 20150123
